FAERS Safety Report 5269672-6 (Version None)
Quarter: 2007Q1

REPORT INFORMATION
  Report Type: 
  Country: None (occurrence: None)
  Receive Date: 20070313
  Receipt Date: 20070309
  Transmission Date: 20070707
  Serious: Yes (Life-Threatening)
  Sender: FDA-Public Use
  Company Number: LTI2007A00053

PATIENT
  Age: 74 Year
  Sex: Male

DRUGS (2)
  1. LEUPRORELIN DEPOT (3M) (LEUPROLIDE ACETATE) (INJECTION) [Suspect]
     Indication: PROSTATE CANCER
     Dosage: 11.25 MG SUBCUTANEOUS
     Route: 058
     Dates: start: 20060818
  2. FLUTAMIDE (FLUTAMIDE)O TABLETS [Suspect]
     Indication: PROSTATE CANCER
     Dosage: 750 MG (250 MG, 3 IN 1 D) ORAL
     Route: 048
     Dates: start: 20060818, end: 20060916

REACTIONS (1)
  - JAUNDICE [None]
